FAERS Safety Report 18290675 (Version 2)
Quarter: 2020Q4

REPORT INFORMATION
  Report Type: Report from Study
  Country: None (occurrence: IT)
  Receive Date: 20200922
  Receipt Date: 20201007
  Transmission Date: 20210113
  Serious: Yes (Hospitalization)
  Sender: FDA-Public Use
  Company Number: IT-ABBVIE-20K-083-3573429-00

PATIENT
  Age: 82 Year
  Sex: Female

DRUGS (2)
  1. DUODOPA [Suspect]
     Active Substance: CARBIDOPA\LEVODOPA
     Indication: PARKINSON^S DISEASE
     Dosage: DAILY DOSE: 1052MG; PUMP SETTING: MD: 6+3 CR: 2,9 (14H),ED: 3
     Route: 050
     Dates: start: 20190709
  2. DUODOPA [Suspect]
     Active Substance: CARBIDOPA\LEVODOPA
     Dosage: TOTAL DAILY DOSE: 1108MG; PUMP SETTING: MD: 6+3; CR: 3,1 (14H); ED: 3
     Route: 050

REACTIONS (2)
  - Device issue [Unknown]
  - Pneumonia staphylococcal [Recovered/Resolved]

NARRATIVE: CASE EVENT DATE: 202006
